FAERS Safety Report 14398731 (Version 1)
Quarter: 2018Q1

REPORT INFORMATION
  Report Type: Other
  Country: CA (occurrence: CA)
  Receive Date: 20180117
  Receipt Date: 20180117
  Transmission Date: 20180509
  Serious: Yes (Other)
  Sender: FDA-Public Use
  Company Number: CA-APOTEX-2018AP005246

PATIENT
  Sex: Male

DRUGS (3)
  1. DICLOFENAC POTASSIUM. [Suspect]
     Active Substance: DICLOFENAC POTASSIUM
     Indication: PRODUCT USED FOR UNKNOWN INDICATION
     Dosage: UNK
     Route: 065
  2. DICLOFENAC [Concomitant]
     Active Substance: DICLOFENAC
     Indication: PRODUCT USED FOR UNKNOWN INDICATION
     Dosage: UNK
     Route: 065
  3. PANTOPRAZOLE [Concomitant]
     Active Substance: PANTOPRAZOLE
     Indication: PRODUCT USED FOR UNKNOWN INDICATION
     Dosage: UNK
     Route: 065

REACTIONS (8)
  - Ankylosing spondylitis [Recovering/Resolving]
  - Psoriasis [Recovering/Resolving]
  - Peptic ulcer [Recovering/Resolving]
  - Contraindicated product administered [Recovering/Resolving]
  - Enthesopathy [Recovering/Resolving]
  - Spinal disorder [Recovering/Resolving]
  - Spondyloarthropathy [Recovering/Resolving]
  - Tendonitis [Recovering/Resolving]
